FAERS Safety Report 6881380-4 (Version None)
Quarter: 2010Q3

REPORT INFORMATION
  Report Type: 
  Country: None (occurrence: None)
  Receive Date: 20100728
  Receipt Date: 20100728
  Transmission Date: 20110219
  Serious: Yes (Hospitalization)
  Sender: FDA-Public Use
  Company Number: None

PATIENT
  Sex: Male
  Weight: 77.73 kg

DRUGS (5)
  1. CYCLOPHOSPHAMIDE [Suspect]
     Dosage: 1537.5 MG
  2. DOXORUBICIN HYDROCHLORIDE [Suspect]
     Dosage: 102.5 MG
  3. PREDNISONE [Suspect]
     Dosage: 410 MG
  4. RITUXIMAB (MOAB C2B8 ANTI CD20, CHIMERIC) [Suspect]
     Dosage: 768.75 MG
  5. VINCRISTINE SULFATE [Suspect]
     Dosage: 1.4 MG

REACTIONS (7)
  - DEHYDRATION [None]
  - DYSPHAGIA [None]
  - DYSPNOEA [None]
  - EJECTION FRACTION DECREASED [None]
  - FEBRILE NEUTROPENIA [None]
  - LEFT VENTRICULAR DYSFUNCTION [None]
  - ORAL CANDIDIASIS [None]
